FAERS Safety Report 11945059 (Version 1)
Quarter: 2016Q1

REPORT INFORMATION
  Report Type: Spontaneous
  Country: US (occurrence: US)
  Receive Date: 20160125
  Receipt Date: 20160125
  Transmission Date: 20160526
  Serious: Yes (Other)
  Sender: FDA-Public Use
  Company Number: US-PFIZER INC-2016031375

PATIENT
  Age: 67 Year
  Sex: Female

DRUGS (15)
  1. PEN VK [Concomitant]
     Active Substance: PENICILLIN V POTASSIUM
     Dosage: 500 MG, 4X/DAY
  2. SEROQUEL [Concomitant]
     Active Substance: QUETIAPINE FUMARATE
     Dosage: 50 MG, 1X/DAY (AT BEDTIME)
  3. LEVOTHYROXINE SODIUM. [Concomitant]
     Active Substance: LEVOTHYROXINE SODIUM
     Dosage: 137 UG, 1X/DAY (EMPTY STOMACH IN THE MORNING)
  4. CRESTOR [Concomitant]
     Active Substance: ROSUVASTATIN CALCIUM
     Dosage: 10 MG, 1X/DAY
  5. NITROSTAT [Suspect]
     Active Substance: NITROGLYCERIN
     Dosage: UNK
  6. METOPROLOL TARTRATE. [Concomitant]
     Active Substance: METOPROLOL TARTRATE
     Dosage: 50 MG, 2X/DAY
  7. XANAX [Concomitant]
     Active Substance: ALPRAZOLAM
     Dosage: 0.25 MG, 1X/DAY (EVERY MORNING)
  8. PANTOPRAZOLE SODIUM. [Concomitant]
     Active Substance: PANTOPRAZOLE SODIUM
     Dosage: 40 MG, 1X/DAY
  9. DETROL LA [Suspect]
     Active Substance: TOLTERODINE TARTRATE
     Dosage: 4 MG, 1X/DAY
  10. LISINOPRIL. [Concomitant]
     Active Substance: LISINOPRIL
     Dosage: 20 MG, 2X/DAY (10 MG TABLET 2 TABLETS TWICE DAILY)
  11. LASIX [Concomitant]
     Active Substance: FUROSEMIDE
     Indication: OEDEMA
     Dosage: 20 MG, AS NEEDED
  12. DEXILANT [Concomitant]
     Active Substance: DEXLANSOPRAZOLE
     Dosage: 60 MG, 1X/DAY
  13. AMLODIPINE BESYLATE. [Concomitant]
     Active Substance: AMLODIPINE BESYLATE
     Dosage: 5 MG, 1X/DAY (EVERY BEDTIME)
  14. CYANOCOBALAMIN. [Concomitant]
     Active Substance: CYANOCOBALAMIN
     Dosage: 1000 UG/ML, MONTHLY 1000 UG/ML, MONTHLY (1000 MCG/ML INJECTABLE 1CC MONTHLY)
  15. COUMADIN [Concomitant]
     Active Substance: WARFARIN SODIUM
     Indication: CARDIOLIPIN ANTIBODY
     Dosage: 5 MG MON AND THURS AND 6 MG ALL OTHER DAYS

REACTIONS (1)
  - Breast calcifications [Unknown]
